FAERS Safety Report 5579044-2 (Version None)
Quarter: 2007Q4

REPORT INFORMATION
  Report Type: 
  Country: None (occurrence: None)
  Receive Date: 20071227
  Receipt Date: 20071220
  Transmission Date: 20080405
  Serious: Yes (Hospitalization)
  Sender: FDA-Public Use
  Company Number: CIP07002471

PATIENT
  Age: 14 Year
  Sex: Male
  Weight: 44 kg

DRUGS (4)
  1. ASACOL [Suspect]
     Indication: CROHN'S DISEASE
     Dosage: 1200 MG THREE TIMES DAILY, ORAL
     Route: 048
     Dates: start: 20071026, end: 20071122
  2. MESALAMINE [Suspect]
     Indication: CROHN'S DISEASE
     Dosage: 3600 MG ONCE DAILY, ORAL
     Route: 048
     Dates: start: 20070701, end: 20070701
  3. PENTASA [Suspect]
     Indication: CROHN'S DISEASE
     Dosage: 2000 MG TWICE DAILY, ORAL
     Route: 048
     Dates: start: 20071004, end: 20071021
  4. CANASA [Suspect]
     Indication: CROHN'S DISEASE
     Dosage: 1000 MG, RECTAL
     Route: 054
     Dates: start: 20071024

REACTIONS (26)
  - ALOPECIA [None]
  - ANOREXIA [None]
  - BACK PAIN [None]
  - CHEILITIS [None]
  - CHEST PAIN [None]
  - CONJUNCTIVITIS [None]
  - COUGH [None]
  - DEHYDRATION [None]
  - DIARRHOEA [None]
  - DIARRHOEA HAEMORRHAGIC [None]
  - DYSPHAGIA [None]
  - EMOTIONAL DISORDER [None]
  - EYE PAIN [None]
  - FATIGUE [None]
  - HAEMOGLOBIN DECREASED [None]
  - JOINT SWELLING [None]
  - LETHARGY [None]
  - MEDICATION RESIDUE [None]
  - MUSCULOSKELETAL PAIN [None]
  - PHARYNGEAL ULCERATION [None]
  - PHARYNGOLARYNGEAL PAIN [None]
  - PLEURAL EFFUSION [None]
  - STOMATITIS [None]
  - TONGUE ULCERATION [None]
  - TREATMENT NONCOMPLIANCE [None]
  - WEIGHT DECREASED [None]
